FAERS Safety Report 7072360-7 (Version None)
Quarter: 2010Q4

REPORT INFORMATION
  Report Type: 
  Country: None (occurrence: None)
  Receive Date: 20101029
  Receipt Date: 20100118
  Transmission Date: 20110411
  Serious: No
  Sender: FDA-Public Use
  Company Number: A0839943A

PATIENT
  Age: 49 Year
  Sex: Female

DRUGS (3)
  1. ADVAIR DISKUS 100/50 [Suspect]
     Indication: ASTHMA
     Dosage: 1PUFF TWICE PER DAY
     Route: 055
     Dates: start: 20090501
  2. IMITREX TABLETS [Concomitant]
  3. ZYRTEC-D 12 HOUR [Concomitant]

REACTIONS (1)
  - DENTAL CARIES [None]
